FAERS Safety Report 6571853-6 (Version None)
Quarter: 2010Q1

REPORT INFORMATION
  Report Type: 
  Country: None (occurrence: None)
  Receive Date: 20100205
  Receipt Date: 20100112
  Transmission Date: 20100710
  Serious: No
  Sender: FDA-Public Use
  Company Number: US-ROXANE LABORATORIES, INC.-2010-RO-00013RO

PATIENT
  Age: 69 Year
  Sex: Female

DRUGS (5)
  1. BALSALAZIDE [Suspect]
     Indication: COLITIS ULCERATIVE
     Dosage: 7500 MG
     Route: 048
     Dates: start: 20080101
  2. BALSALAZIDE [Suspect]
     Dosage: 9000 MG
     Route: 048
     Dates: end: 20100101
  3. MESALAMINE [Concomitant]
  4. CORTISONE [Concomitant]
  5. ROWASA [Concomitant]

REACTIONS (2)
  - DRUG INEFFECTIVE [None]
  - HAEMORRHAGE [None]
